FAERS Safety Report 4581680-7 (Version None)
Quarter: 2005Q1

REPORT INFORMATION
  Report Type: 
  Country: None (occurrence: None)
  Receive Date: 20050214
  Receipt Date: 20041215
  Transmission Date: 20050727
  Serious: No
  Sender: FDA-Public Use
  Company Number: US-GLAXOSMITHKLINE-A0537461A

PATIENT
  Age: 49 Year
  Sex: Female

DRUGS (7)
  1. LAMICTAL [Suspect]
     Indication: BIPOLAR DISORDER
     Dosage: 100MG TWICE PER DAY
     Route: 048
     Dates: start: 19980601
  2. ZYPREXA [Concomitant]
  3. FLEXERIL [Concomitant]
  4. VICODIN [Concomitant]
  5. RELAFEN [Concomitant]
  6. DOXYCYCLINE [Concomitant]
  7. XANAX [Concomitant]

REACTIONS (2)
  - ARTHRALGIA [None]
  - PAIN IN EXTREMITY [None]
